FAERS Safety Report 26108157 (Version 1)
Quarter: 2025Q4

REPORT INFORMATION
  Report Type: Spontaneous
  Country: US (occurrence: US)
  Receive Date: 20251201
  Receipt Date: 20251201
  Transmission Date: 20260117
  Serious: Yes (Life-Threatening, Hospitalization, Other)
  Sender: EXELA PHARMA SCIENCES
  Company Number: US-EXELAPHARMA-2025EXLA00217

PATIENT
  Age: 27 Year
  Sex: Female

DRUGS (4)
  1. GLYRX-PF [Suspect]
     Active Substance: GLYCOPYRROLATE
     Indication: Prophylaxis
  2. GLYRX-PF [Suspect]
     Active Substance: GLYCOPYRROLATE
     Indication: Bradycardia
  3. GLYRX-PF [Suspect]
     Active Substance: GLYCOPYRROLATE
     Indication: Bradycardia
  4. GLYRX-PF [Suspect]
     Active Substance: GLYCOPYRROLATE
     Indication: Bradycardia

REACTIONS (5)
  - Cardiogenic shock [Recovered/Resolved]
  - Stress cardiomyopathy [Recovered/Resolved]
  - Acute pulmonary oedema [Recovered/Resolved]
  - Tachycardia [Recovered/Resolved]
  - Cardiac arrest [Recovered/Resolved]
